FAERS Safety Report 14529381 (Version 6)
Quarter: 2019Q3

REPORT INFORMATION
  Report Type: Report from Study
  Country: NL (occurrence: NL)
  Receive Date: 20180214
  Receipt Date: 20190922
  Transmission Date: 20191004
  Serious: Yes (Other)
  Sender: FDA-Public Use
  Company Number: NL-CELGENEUS-NLD-20180110978

PATIENT
  Age: 71 Year
  Sex: Male

DRUGS (4)
  1. REVLIMID [Suspect]
     Active Substance: LENALIDOMIDE
     Indication: PLASMA CELL MYELOMA
     Route: 065
     Dates: start: 20131126, end: 20140711
  2. MELPHALAN. [Suspect]
     Active Substance: MELPHALAN
     Indication: PLASMA CELL MYELOMA
     Route: 065
     Dates: start: 20131126, end: 20140711
  3. THALIDOMIDE CELGENE [Suspect]
     Active Substance: THALIDOMIDE
     Indication: PLASMA CELL MYELOMA
     Route: 048
     Dates: start: 20110822, end: 20120430
  4. PREDNISOLONE. [Suspect]
     Active Substance: PREDNISOLONE
     Indication: PLASMA CELL MYELOMA
     Route: 065
     Dates: start: 20150629, end: 20160408

REACTIONS (1)
  - Transitional cell carcinoma [Not Recovered/Not Resolved]

NARRATIVE: CASE EVENT DATE: 20160323
